FAERS Safety Report 12776041 (Version 1)
Quarter: 2016Q3

REPORT INFORMATION
  Report Type: Report from Study
  Country: CO (occurrence: CO)
  Receive Date: 20160923
  Receipt Date: 20160923
  Transmission Date: 20161109
  Serious: Yes (Other)
  Sender: FDA-Public Use
  Company Number: CO-SA-2016SA171710

PATIENT
  Age: 22 Year
  Sex: Male
  Weight: 60 kg

DRUGS (2)
  1. TIZANIDINE. [Concomitant]
     Active Substance: TIZANIDINE
     Indication: MUSCLE SPASTICITY
     Dosage: DAILY BUT OCCASIONAL (DEPENDING OF SEVERITY OF SPASTICITY)
     Route: 048
     Dates: start: 201601
  2. LEMTRADA [Suspect]
     Active Substance: ALEMTUZUMAB
     Indication: MULTIPLE SCLEROSIS
     Route: 041
     Dates: start: 20160503, end: 20160507

REACTIONS (14)
  - Dyspnoea [Recovered/Resolved]
  - Arthralgia [Recovered/Resolved]
  - Erythropenia [Not Recovered/Not Resolved]
  - Blood thyroid stimulating hormone increased [Unknown]
  - Immune thrombocytopenic purpura [Not Recovered/Not Resolved]
  - Normochromic normocytic anaemia [Not Recovered/Not Resolved]
  - Muscular weakness [Unknown]
  - Leukopenia [Not Recovered/Not Resolved]
  - Lymphopenia [Not Recovered/Not Resolved]
  - Thyroid disorder [Not Recovered/Not Resolved]
  - Arthralgia [Unknown]
  - Blood creatinine increased [Not Recovered/Not Resolved]
  - Fatigue [Unknown]
  - Myalgia [Unknown]

NARRATIVE: CASE EVENT DATE: 20160606
